FAERS Safety Report 23737433 (Version 1)
Quarter: 2024Q2

REPORT INFORMATION
  Report Type: Spontaneous
  Country: US (occurrence: None)
  Receive Date: 20240412
  Receipt Date: 20240412
  Transmission Date: 20240715
  Serious: No
  Sender: FDA-Public Use
  Company Number: None

PATIENT
  Age: 67 Year
  Sex: Male
  Weight: 121.11 kg

DRUGS (2)
  1. ENBREL [Suspect]
     Active Substance: ETANERCEPT
     Indication: Rheumatoid arthritis
     Dosage: FREQUENCY : AS DIRECTED;?
     Route: 058
     Dates: start: 202209
  2. ENBREL [Suspect]
     Active Substance: ETANERCEPT
     Indication: Spinal osteoarthritis

REACTIONS (2)
  - Hip arthroplasty [None]
  - Intentional dose omission [None]
